FAERS Safety Report 7829717-3 (Version None)
Quarter: 2011Q4

REPORT INFORMATION
  Report Type: 
  Country: None (occurrence: None)
  Receive Date: 20111021
  Receipt Date: 20111010
  Transmission Date: 20120403
  Serious: Yes (Death, Hospitalization)
  Sender: FDA-Public Use
  Company Number: US-RANBAXY-2011US-49060

PATIENT
  Age: 33 Year
  Sex: Female

DRUGS (1)
  1. ACETAMINOPHEN [Suspect]
     Indication: HEADACHE
     Dosage: UNK, SINGLE DOSE
     Route: 048

REACTIONS (10)
  - VOMITING [None]
  - ABDOMINAL PAIN UPPER [None]
  - HYPOXIA [None]
  - HYPOTENSION [None]
  - PULMONARY OEDEMA [None]
  - ADVERSE REACTION [None]
  - HEPATIC FUNCTION ABNORMAL [None]
  - MENTAL STATUS CHANGES [None]
  - URINE OUTPUT DECREASED [None]
  - NAUSEA [None]
